FAERS Safety Report 14972114 (Version 1)
Quarter: 2018Q2

REPORT INFORMATION
  Report Type: Spontaneous
  Country: US (occurrence: US)
  Receive Date: 20180605
  Receipt Date: 20180605
  Transmission Date: 20180711
  Serious: No
  Sender: FDA-Public Use
  Company Number: US-FOUNDATIONCONSUMERHC-2018-US-002663

PATIENT
  Age: 41 Year
  Sex: Female
  Weight: 64.86 kg

DRUGS (3)
  1. PLAN B ONE-STEP [Suspect]
     Active Substance: LEVONORGESTREL
     Dosage: 1.5 MG
     Route: 048
     Dates: start: 20180211, end: 20180211
  2. UNSPECIFIED BIRTH CONTROL [Concomitant]
     Active Substance: UNSPECIFIED INGREDIENT
  3. PLAN B ONE-STEP [Suspect]
     Active Substance: LEVONORGESTREL
     Dosage: 1.5 MG
     Route: 048
     Dates: start: 20180108, end: 20180108

REACTIONS (5)
  - Dyspepsia [Not Recovered/Not Resolved]
  - Sinus headache [Recovered/Resolved]
  - Nausea [Recovering/Resolving]
  - Eructation [Not Recovered/Not Resolved]
  - Intentional product misuse [Recovered/Resolved]

NARRATIVE: CASE EVENT DATE: 20180108
